FAERS Safety Report 10485246 (Version 3)
Quarter: 2014Q4

REPORT INFORMATION
  Report Type: Spontaneous
  Country: DE (occurrence: DE)
  Receive Date: 20140930
  Receipt Date: 20141105
  Transmission Date: 20150528
  Serious: Yes (Life-Threatening, Hospitalization, Other)
  Sender: FDA-Public Use
  Company Number: DE-BAXTER-2014BAX057278

PATIENT
  Age: 60 Year
  Sex: Male

DRUGS (5)
  1. KIOVIG [Suspect]
     Active Substance: HUMAN IMMUNOGLOBULIN G
     Indication: POLYMYOSITIS
     Dosage: 70G OVER 2 DAYS ALL 4 WEEKS
     Route: 065
     Dates: start: 20140922
  2. KIOVIG [Suspect]
     Active Substance: HUMAN IMMUNOGLOBULIN G
     Indication: POLYMYOSITIS
     Dosage: 70G OVER 2 DAYS ALL 4 WEEKS
     Route: 065
     Dates: start: 20140922
  3. KIOVIG [Suspect]
     Active Substance: HUMAN IMMUNOGLOBULIN G
     Indication: OFF LABEL USE
     Dosage: 70 GRAMS OVER 2 DAYS
     Route: 065
  4. KIOVIG [Suspect]
     Active Substance: HUMAN IMMUNOGLOBULIN G
     Indication: OFF LABEL USE
     Dosage: 70 GRAMS OVER 2 DAYS
     Route: 065
  5. PRIVIGEN [Concomitant]
     Active Substance: HUMAN IMMUNOGLOBULIN G
     Indication: POLYMYOSITIS
     Dosage: INFUSION OVER 6 HOURS
     Route: 065

REACTIONS (15)
  - Lip swelling [Unknown]
  - Swelling face [Unknown]
  - Pruritus generalised [Unknown]
  - Pain in extremity [Unknown]
  - Muscle spasms [Unknown]
  - Face oedema [Recovering/Resolving]
  - Mouth swelling [Unknown]
  - General physical health deterioration [Unknown]
  - Blister [Unknown]
  - Hypersensitivity [Unknown]
  - Dyspnoea [Recovered/Resolved]
  - Generalised erythema [Unknown]
  - Eye swelling [Unknown]
  - Rash pustular [Unknown]
  - Swollen tongue [Unknown]

NARRATIVE: CASE EVENT DATE: 201409
